FAERS Safety Report 14412713 (Version 6)
Quarter: 2019Q1

REPORT INFORMATION
  Report Type: Spontaneous
  Country: US (occurrence: US)
  Receive Date: 20180119
  Receipt Date: 20190320
  Transmission Date: 20190417
  Serious: Yes (Other)
  Sender: FDA-Public Use
  Company Number: US-009507513-1801USA004372

PATIENT
  Age: 69 Year
  Sex: Female
  Weight: 67.3 kg

DRUGS (63)
  1. PLAQUENIL [Concomitant]
     Active Substance: HYDROXYCHLOROQUINE SULFATE
     Indication: RHEUMATOID ARTHRITIS
     Dosage: UNK
     Dates: start: 2008
  2. WELCHOL [Concomitant]
     Active Substance: COLESEVELAM HYDROCHLORIDE
  3. BENICAR HCT [Concomitant]
     Active Substance: HYDROCHLOROTHIAZIDE\OLMESARTAN MEDOXOMIL
  4. ASPIR-81 [Concomitant]
     Active Substance: ASPIRIN
  5. CRANBERRY. [Concomitant]
     Active Substance: CRANBERRY
  6. MISOPROSTOL. [Concomitant]
     Active Substance: MISOPROSTOL
  7. FLEXERIL [Concomitant]
     Active Substance: CYCLOBENZAPRINE HYDROCHLORIDE
     Dosage: UNK
  8. HUMIRA [Concomitant]
     Active Substance: ADALIMUMAB
  9. ASPIRIN. [Concomitant]
     Active Substance: ASPIRIN
  10. REFRESH LIQUIGEL [Concomitant]
     Active Substance: CARBOXYMETHYLCELLULOSE SODIUM
  11. TOPROL XL [Concomitant]
     Active Substance: METOPROLOL SUCCINATE
  12. CHONDROITIN (+) GLUCOSAMINE [Concomitant]
     Dosage: UNK
  13. VICOPROFEN [Concomitant]
     Active Substance: HYDROCODONE BITARTRATE\IBUPROFEN
  14. PREDNISONE. [Suspect]
     Active Substance: PREDNISONE
     Dosage: UNK
     Dates: start: 20131120
  15. PLAQUENIL [Concomitant]
     Active Substance: HYDROXYCHLOROQUINE SULFATE
     Dosage: UNK
     Dates: start: 2009
  16. SKELAXIN [Concomitant]
     Active Substance: METAXALONE
  17. ETODOLAC. [Concomitant]
     Active Substance: ETODOLAC
  18. SYNVISC [Concomitant]
     Active Substance: HYLAN G-F 20
     Dosage: UNK
     Dates: start: 20160203, end: 20160203
  19. SYNVISC [Concomitant]
     Active Substance: HYLAN G-F 20
     Dosage: UNK
     Dates: start: 201608, end: 201608
  20. ZINC SULFATE [Concomitant]
     Active Substance: ZINC SULFATE\ZINC SULFATE ANHYDROUS
  21. COMPAZINE (PROCHLORPERAZINE MALEATE) [Concomitant]
     Dosage: UNK
  22. LISINOPRIL. [Concomitant]
     Active Substance: LISINOPRIL
  23. TYLENOL EXTRA STRENGTH [Concomitant]
     Active Substance: ACETAMINOPHEN
  24. ARTHROTEC [Concomitant]
     Active Substance: DICLOFENAC SODIUM\MISOPROSTOL
     Dosage: UNK
  25. VESICARE [Concomitant]
     Active Substance: SOLIFENACIN SUCCINATE
     Dosage: UNK
  26. PREDNISONE. [Suspect]
     Active Substance: PREDNISONE
     Dosage: UNK
  27. PLAQUENIL [Concomitant]
     Active Substance: HYDROXYCHLOROQUINE SULFATE
     Dosage: 600 MILLIGRAM, QD
     Dates: start: 20120314
  28. CYTOTEC [Concomitant]
     Active Substance: MISOPROSTOL
  29. MILK OF MAGNESIA [Concomitant]
     Active Substance: MAGNESIUM HYDROXIDE
  30. PRILOSEC [Concomitant]
     Active Substance: OMEPRAZOLE MAGNESIUM
  31. NEURONTIN [Concomitant]
     Active Substance: GABAPENTIN
  32. DONECEPT [Concomitant]
     Active Substance: DONEPEZIL HYDROCHLORIDE
  33. SYNVISC-ONE [Concomitant]
     Active Substance: HYLAN G-F 20
     Dosage: UNK
     Dates: start: 20110524
  34. OMEGA-3 MARINE TRIGLYCERIDES [Concomitant]
     Active Substance: FISH OIL
  35. ESTRACE [Concomitant]
     Active Substance: ESTRADIOL
  36. CALCIUM (UNSPECIFIED) (+) VITAMIN D (UNSPECIFIED) [Concomitant]
     Active Substance: CALCIUM CARBONATE\VITAMIN D
  37. VITAMINS (UNSPECIFIED) [Concomitant]
     Active Substance: VITAMINS
  38. LIDOCAINE. [Concomitant]
     Active Substance: LIDOCAINE
     Dosage: UNK
  39. CITRACAL [Concomitant]
     Active Substance: CALCIUM CITRATE
     Dosage: UNK
  40. PERCOCET [Concomitant]
     Active Substance: ACETAMINOPHEN\OXYCODONE HYDROCHLORIDE
     Dosage: UNK
  41. FOSAMAX [Suspect]
     Active Substance: ALENDRONATE SODIUM
     Indication: PAIN IN JAW
     Dosage: 70 MG, WEEKLY
     Route: 048
     Dates: start: 201201, end: 201309
  42. PREDNISONE. [Suspect]
     Active Substance: PREDNISONE
     Dosage: UNK
     Dates: start: 2011, end: 2012
  43. SYNVISC-ONE [Concomitant]
     Active Substance: HYLAN G-F 20
     Dosage: UNK
     Dates: start: 20120404
  44. ZYRTEC [Concomitant]
     Active Substance: CETIRIZINE HYDROCHLORIDE
  45. SYNVISC [Concomitant]
     Active Substance: HYLAN G-F 20
     Dosage: UNK
     Dates: start: 20170822
  46. CETIRIZINE HYDROCHLORIDE. [Concomitant]
     Active Substance: CETIRIZINE HYDROCHLORIDE
  47. POLYETHYLENE GLYCOL 3350. [Concomitant]
     Active Substance: POLYETHYLENE GLYCOL 3350
  48. ALPRAZOLAM. [Concomitant]
     Active Substance: ALPRAZOLAM
  49. AZOR [Concomitant]
     Active Substance: AMLODIPINE BESYLATE\OLMESARTAN MEDOXOMIL
     Dosage: UNK
  50. ENBREL [Concomitant]
     Active Substance: ETANERCEPT
     Dosage: UNK
     Dates: end: 20120314
  51. URSODIOL. [Suspect]
     Active Substance: URSODIOL
     Indication: WEIGHT DECREASED
     Dosage: 1500 MG, UNK
     Route: 048
  52. SYNVISC-ONE [Concomitant]
     Active Substance: HYLAN G-F 20
     Dosage: UNK
     Dates: start: 20120404
  53. TRAZODONE HYDROCHLORIDE. [Concomitant]
     Active Substance: TRAZODONE HYDROCHLORIDE
  54. NEXIUM [Concomitant]
     Active Substance: ESOMEPRAZOLE MAGNESIUM
  55. MOMETASONE FUROATE. [Concomitant]
     Active Substance: MOMETASONE FUROATE
     Dosage: FORMULATION: NASAL SPRAY
  56. COMPAZINE (PROCHLORPERAZINE MALEATE) [Concomitant]
     Dosage: UNK
  57. MVI (ASCORBIC ACID (+) ERGOCALCIFEROL (+) FOLIC ACID (+) PHYTONADIONE [Concomitant]
     Dosage: UNK
  58. XELJANZ [Concomitant]
     Active Substance: TOFACITINIB CITRATE
     Dosage: UNK
     Dates: end: 20190103
  59. NASONEX [Concomitant]
     Active Substance: MOMETASONE FUROATE
  60. CALCIUM (UNSPECIFIED) [Concomitant]
     Active Substance: CALCIUM
  61. CYANOCOBALAMIN. [Concomitant]
     Active Substance: CYANOCOBALAMIN
  62. ARAVA [Concomitant]
     Active Substance: LEFLUNOMIDE
  63. MICONAZOLE NITRATE. [Concomitant]
     Active Substance: MICONAZOLE NITRATE

REACTIONS (28)
  - Therapeutic procedure [Unknown]
  - Weight decreased [Unknown]
  - Pelvic pain [Unknown]
  - Neuropathy peripheral [Unknown]
  - Intervertebral disc protrusion [Unknown]
  - Trigger finger [Recovered/Resolved]
  - Insomnia [Unknown]
  - Pain in jaw [Recovered/Resolved]
  - Gait disturbance [Unknown]
  - Pelvic fracture [Unknown]
  - Anxiety [Unknown]
  - Peripheral nerve lesion [Unknown]
  - Urinary tract infection [Unknown]
  - Gait disturbance [Unknown]
  - Drug intolerance [Unknown]
  - Alopecia [Unknown]
  - Epidural injection [Unknown]
  - Carpal tunnel syndrome [Unknown]
  - Increased appetite [Unknown]
  - Feeling jittery [Unknown]
  - Hypoaesthesia [Unknown]
  - Pelvic fracture [Unknown]
  - Spinal column stenosis [Unknown]
  - Arthritis [Unknown]
  - Intervertebral disc degeneration [Unknown]
  - Hypoaesthesia [Unknown]
  - Malaise [Unknown]
  - Arthralgia [Unknown]

NARRATIVE: CASE EVENT DATE: 2012
